FAERS Safety Report 24204982 (Version 1)
Quarter: 2024Q3

REPORT INFORMATION
  Report Type: Spontaneous
  Country: ES (occurrence: ES)
  Receive Date: 20240813
  Receipt Date: 20240813
  Transmission Date: 20241016
  Serious: Yes (Other)
  Sender: SERVIER
  Company Number: None

PATIENT

DRUGS (8)
  1. PEGASPARGASE [Suspect]
     Active Substance: PEGASPARGASE
     Indication: Leukaemia
     Dosage: 900 IU, EVERY 2 WEEKS
     Route: 042
     Dates: start: 20240531, end: 20240614
  2. CYTARABINE [Suspect]
     Active Substance: CYTARABINE
     Indication: Leukaemia
     Dosage: 24 MG, ONCE
     Route: 037
     Dates: start: 20240605, end: 20240605
  3. VINCRISTINE SULFATE [Suspect]
     Active Substance: VINCRISTINE SULFATE
     Indication: Leukaemia
     Dosage: 1.3 MG, EVERY 1 WEEK
     Route: 042
     Dates: start: 20240531, end: 20240614
  4. MITOXANTRONE HYDROCHLORIDE [Suspect]
     Active Substance: MITOXANTRONE HYDROCHLORIDE
     Indication: Leukaemia
     Dosage: 9 MG, QD
     Route: 042
     Dates: start: 20240529, end: 20240530
  5. DEXAMETHASONE [Suspect]
     Active Substance: DEXAMETHASONE
     Indication: Leukaemia
     Dosage: 9 MG, BID
     Route: 042
     Dates: start: 20240612, end: 20240616
  6. METHOTREXATE [Suspect]
     Active Substance: METHOTREXATE
     Indication: Leukaemia
     Dosage: 12 MG, ONCE
     Route: 037
     Dates: start: 20240605, end: 20240605
  7. HYDROCORTISONE [Suspect]
     Active Substance: HYDROCORTISONE\HYDROCORTISONE ACETATE
     Indication: Leukaemia
     Dosage: ONCE
     Route: 037
     Dates: start: 20240605, end: 20240605
  8. AMPHOTERICIN B [Suspect]
     Active Substance: AMPHOTERICIN B
     Indication: Fungaemia
     Dosage: 100 MG, QD
     Route: 042
     Dates: start: 20240618, end: 20240626

REACTIONS (1)
  - Hypokalaemia [Recovered/Resolved]

NARRATIVE: CASE EVENT DATE: 20240625
